FAERS Safety Report 24454699 (Version 2)
Quarter: 2024Q4

REPORT INFORMATION
  Report Type: Report from Study
  Country: US (occurrence: US)
  Receive Date: 20241017
  Receipt Date: 20241018
  Transmission Date: 20250115
  Serious: No
  Sender: ROCHE
  Company Number: US-ROCHE-3475454

PATIENT
  Age: 27 Year
  Sex: Female

DRUGS (1)
  1. RITUXAN [Suspect]
     Active Substance: RITUXIMAB
     Indication: Pemphigus
     Dosage: 300 MG ON DAY 1 AND 15, THEN 600 MG EVERY 6 MONTHS THEREAFTER. QUANTITY 2
     Route: 065

REACTIONS (1)
  - Infusion related reaction [Unknown]
